FAERS Safety Report 14693530 (Version 2)
Quarter: 2018Q2

REPORT INFORMATION
  Report Type: Spontaneous
  Country: AU (occurrence: AU)
  Receive Date: 20180329
  Receipt Date: 20180403
  Transmission Date: 20180711
  Serious: Yes (Other)
  Sender: FDA-Public Use
  Company Number: AU-ASTRAZENECA-2018SE38053

PATIENT
  Sex: Female
  Weight: 48 kg

DRUGS (1)
  1. FASLODEX [Suspect]
     Active Substance: FULVESTRANT
     Indication: BREAST CANCER METASTATIC
     Dosage: 250MGX2, MONTHLY
     Route: 030
     Dates: start: 201704, end: 201709

REACTIONS (1)
  - Malignant neoplasm progression [Unknown]
